FAERS Safety Report 9537645 (Version 5)
Quarter: 2014Q2

REPORT INFORMATION
  Report Type: Spontaneous
  Country: US (occurrence: US)
  Receive Date: 20130919
  Receipt Date: 20140527
  Transmission Date: 20141212
  Serious: Yes (Hospitalization, Disabling, Other)
  Sender: FDA-Public Use
  Company Number: US-009507513-1309USA005966

PATIENT
  Sex: Female
  Weight: 68.27 kg

DRUGS (3)
  1. FOSAMAX [Suspect]
     Indication: OSTEOPOROSIS
     Dosage: 70 MG, QW
     Route: 048
     Dates: start: 2001
  2. ALENDRONATE SODIUM [Suspect]
     Indication: OSTEOPOROSIS
     Dosage: 70 MG, UNK
     Route: 048
     Dates: start: 20080418, end: 20110903
  3. OS-CAL PLUS [Concomitant]
     Indication: OSTEOPOROSIS

REACTIONS (81)
  - Jaw fracture [Unknown]
  - Jaw disorder [Not Recovered/Not Resolved]
  - Internal fixation of fracture [Unknown]
  - Fracture nonunion [Unknown]
  - Biopsy [Unknown]
  - Biopsy bone [Unknown]
  - Breast cancer female [Unknown]
  - Knee arthroplasty [Unknown]
  - Knee arthroplasty [Unknown]
  - Radical mastectomy [Unknown]
  - Spinal laminectomy [Unknown]
  - Joint arthroplasty [Unknown]
  - Acute respiratory failure [Unknown]
  - Acute prerenal failure [Unknown]
  - Osteomyelitis [Unknown]
  - Renal failure acute [Recovered/Resolved]
  - Bronchial hyperreactivity [Unknown]
  - Renal failure acute [Recovered/Resolved]
  - Spinal osteoarthritis [Unknown]
  - Escherichia urinary tract infection [Unknown]
  - Sepsis [Unknown]
  - Dehydration [Unknown]
  - Hypervolaemia [Unknown]
  - Osteoarthritis [Unknown]
  - Rotator cuff syndrome [Not Recovered/Not Resolved]
  - Mental status changes [Unknown]
  - Sepsis [Unknown]
  - Urinary tract infection [Unknown]
  - Renal failure acute [Unknown]
  - Dehydration [Unknown]
  - Viral diarrhoea [Recovered/Resolved]
  - Hypokalaemia [Unknown]
  - Renal failure acute [Recovered/Resolved]
  - Urinary tract infection [Unknown]
  - Asthenia [Unknown]
  - Intervertebral discitis [Unknown]
  - Osteonecrosis of jaw [Unknown]
  - Musculoskeletal pain [Unknown]
  - Stomatitis [Recovered/Resolved]
  - Mouth injury [Unknown]
  - Wound closure [Unknown]
  - Appendicectomy [Unknown]
  - Cystitis klebsiella [Unknown]
  - Enterococcal infection [Unknown]
  - Cardiac failure congestive [Unknown]
  - Spinal osteoarthritis [Unknown]
  - Spinal compression fracture [Unknown]
  - Spinal compression fracture [Unknown]
  - Intervertebral disc degeneration [Unknown]
  - Intervertebral disc protrusion [Unknown]
  - Hypertension [Unknown]
  - Osteoarthritis [Unknown]
  - Anxiety [Unknown]
  - Depression [Unknown]
  - Tonsillectomy [Unknown]
  - Pilonidal sinus repair [Unknown]
  - Hysterectomy [Unknown]
  - Salpingo-oophorectomy bilateral [Unknown]
  - Limb operation [Unknown]
  - Diabetes mellitus [Unknown]
  - Hyperlipidaemia [Unknown]
  - Electrocardiogram low voltage [Unknown]
  - Colitis [Unknown]
  - Cerumen impaction [Unknown]
  - Scoliosis [Unknown]
  - Delirium [Unknown]
  - Dementia [Unknown]
  - Chest X-ray abnormal [Unknown]
  - Osteopenia [Unknown]
  - Cough [Unknown]
  - Fatigue [Unknown]
  - Decreased appetite [Unknown]
  - Cerebral ischaemia [Unknown]
  - Anaemia [Not Recovered/Not Resolved]
  - Hypovolaemia [Unknown]
  - Occult blood positive [Unknown]
  - Proctitis [Unknown]
  - Pulmonary oedema [Unknown]
  - Diverticulum intestinal [Unknown]
  - Pelvic fluid collection [Unknown]
  - Vomiting [Unknown]
